FAERS Safety Report 6892672-7 (Version None)
Quarter: 2010Q3

REPORT INFORMATION
  Report Type: 
  Country: None (occurrence: None)
  Receive Date: 20100731
  Receipt Date: 20080812
  Transmission Date: 20110219
  Serious: No
  Sender: FDA-Public Use
  Company Number: US-PFIZER INC-2006033469

PATIENT
  Sex: Male
  Weight: 97.52 kg

DRUGS (10)
  1. NEURONTIN [Suspect]
     Indication: CONVULSION
     Route: 065
  2. MOTRIN [Suspect]
     Indication: ILL-DEFINED DISORDER
  3. TEGRETOL [Suspect]
     Indication: ILL-DEFINED DISORDER
  4. CLONAZEPAM [Suspect]
     Indication: ILL-DEFINED DISORDER
  5. PREVACID [Suspect]
     Indication: ILL-DEFINED DISORDER
  6. VICOPROFEN [Suspect]
     Indication: ILL-DEFINED DISORDER
  7. RITALIN [Concomitant]
  8. TRILEPTAL [Concomitant]
  9. TEMAZEPAM [Concomitant]
  10. ALL OTHER THERAPEUTIC PRODUCTS [Concomitant]

REACTIONS (7)
  - ABDOMINAL PAIN UPPER [None]
  - CONSTIPATION [None]
  - FLATULENCE [None]
  - GASTROINTESTINAL HAEMORRHAGE [None]
  - INTESTINAL FUNCTIONAL DISORDER [None]
  - SOMNOLENCE [None]
  - WEIGHT DECREASED [None]
